FAERS Safety Report 22536717 (Version 1)
Quarter: 2023Q2

REPORT INFORMATION
  Report Type: Spontaneous
  Country: CN (occurrence: CN)
  Receive Date: 20230608
  Receipt Date: 20230608
  Transmission Date: 20230722
  Serious: Yes (Hospitalization, Other)
  Sender: FDA-Public Use
  Company Number: CN-SUN PHARMACEUTICAL INDUSTRIES LTD-2023R1-392754

PATIENT
  Age: 80 Year
  Sex: Male

DRUGS (2)
  1. BICALUTAMIDE [Suspect]
     Active Substance: BICALUTAMIDE
     Indication: Prostate cancer
     Dosage: 50 MILLIGRAM, QD
     Route: 065
     Dates: start: 201804
  2. GOSERELIN [Suspect]
     Active Substance: GOSERELIN
     Indication: Prostate cancer
     Dosage: 10.8 MILLIGRAM, ONCE EVERY THREE MONTHS
     Route: 065
     Dates: start: 201804

REACTIONS (3)
  - Disease progression [Unknown]
  - Haematuria [Unknown]
  - Anaemia [Unknown]
